FAERS Safety Report 7747109-2 (Version None)
Quarter: 2011Q3

REPORT INFORMATION
  Report Type: 
  Country: None (occurrence: None)
  Receive Date: 20110907
  Receipt Date: 20110824
  Transmission Date: 20111222
  Serious: Yes (Other)
  Sender: FDA-Public Use
  Company Number: USA/USA/11/0020988

PATIENT
  Age: 71 Year
  Sex: Male

DRUGS (3)
  1. LIPITOR [Suspect]
     Indication: PRODUCT USED FOR UNKNOWN INDICATION
     Dosage: ORAL
     Route: 048
     Dates: start: 20110101
  2. AMOXICILLIN [Suspect]
     Indication: SURGERY
     Dosage: ORAL
     Route: 048
     Dates: start: 20110401, end: 20110101
  3. SIMVASTATIN [Suspect]
     Indication: PRODUCT USED FOR UNKNOWN INDICATION
     Dosage: ORAL
     Route: 048
     Dates: end: 20110101

REACTIONS (3)
  - MUSCLE INJURY [None]
  - DRUG INTERACTION [None]
  - GAIT DISTURBANCE [None]
